FAERS Safety Report 4527664-6 (Version None)
Quarter: 2004Q4

REPORT INFORMATION
  Report Type: 
  Country: None (occurrence: None)
  Receive Date: 20041215
  Receipt Date: 20041102
  Transmission Date: 20050328
  Serious: Yes (Other)
  Sender: FDA-Public Use
  Company Number: US-SOLVAY-00204003917

PATIENT
  Age: 30 Year
  Sex: Female

DRUGS (3)
  1. CHROMAGEN FORTE [Concomitant]
     Indication: ANAEMIA
     Dosage: DAILY DOSE:  UNKNOWN
     Route: 048
     Dates: start: 20041101
  2. PROMETRIUM [Suspect]
     Indication: DYSFUNCTIONAL UTERINE BLEEDING
     Dosage: DAILY DOSE: 200 MILLIGRAM(S)
     Route: 048
     Dates: start: 20041101, end: 20041101
  3. SYNTHROID [Concomitant]
     Indication: HYPOTHYROIDISM
     Dosage: DAILY DOSE: .075 MILLIGRAM(S)
     Route: 048

REACTIONS (4)
  - DIZZINESS [None]
  - HEART RATE DECREASED [None]
  - HYPERHIDROSIS [None]
  - SYNCOPE [None]
